FAERS Safety Report 25396504 (Version 2)
Quarter: 2025Q3

REPORT INFORMATION
  Report Type: Report from Study
  Country: CA (occurrence: CA)
  Receive Date: 20250604
  Receipt Date: 20250810
  Transmission Date: 20251020
  Serious: Yes (Other)
  Sender: ALEXION PHARMACEUTICALS
  Company Number: CA-AstraZeneca-CH-00882546A

PATIENT
  Age: 42 Year
  Sex: Female

DRUGS (1)
  1. ANIFROLUMAB [Suspect]
     Active Substance: ANIFROLUMAB
     Indication: Systemic lupus erythematosus
     Dates: start: 20250405

REACTIONS (7)
  - Vaginal abscess [Recovering/Resolving]
  - Rectal abscess [Recovering/Resolving]
  - Anal cyst [Recovering/Resolving]
  - Fatigue [Recovering/Resolving]
  - Muscular weakness [Recovering/Resolving]
  - Restless legs syndrome [Unknown]
  - Vaginal cyst [Recovering/Resolving]

NARRATIVE: CASE EVENT DATE: 20250507
